FAERS Safety Report 8358716-0 (Version None)
Quarter: 2012Q2

REPORT INFORMATION
  Report Type: 
  Country: None (occurrence: None)
  Receive Date: 20120514
  Receipt Date: 20120430
  Transmission Date: 20120825
  Serious: Yes (Other)
  Sender: FDA-Public Use
  Company Number: AU-BAXTER-2012BAX004314

PATIENT
  Sex: Female

DRUGS (4)
  1. KIOVIG [Suspect]
     Indication: IDIOPATHIC THROMBOCYTOPENIC PURPURA
     Dosage: 2 G/KG
     Route: 042
     Dates: start: 20120429, end: 20120429
  2. FUROSEMIDE [Concomitant]
  3. PANTOPRAZOLE [Concomitant]
  4. SPIRONOLACTONE [Concomitant]

REACTIONS (7)
  - FALL [None]
  - CIRCULATORY COLLAPSE [None]
  - VIITH NERVE PARALYSIS [None]
  - CHILLS [None]
  - NAUSEA [None]
  - BLOOD PRESSURE INCREASED [None]
  - HEADACHE [None]
